FAERS Safety Report 8886444 (Version 3)
Quarter: 2012Q4

REPORT INFORMATION
  Report Type: 
  Country: AU (occurrence: AU)
  Receive Date: 20121105
  Receipt Date: 20121206
  Transmission Date: 20130627
  Serious: Yes (Other)
  Sender: FDA-Public Use
  Company Number: PHHY2012AU100066

PATIENT
  Age: 25 Year
  Sex: Male

DRUGS (4)
  1. CLOZARIL [Suspect]
     Dosage: 100 mg, UNK
     Route: 048
     Dates: start: 20101206
  2. CLOZARIL [Suspect]
     Dosage: 150 mg
     Route: 048
  3. CLOZARIL [Suspect]
     Dosage: 400 mg, UNK
     Route: 048
     Dates: start: 20121016
  4. CLOZARIL [Suspect]
     Dosage: 200 mg, UNK
     Route: 048
     Dates: start: 20121026

REACTIONS (7)
  - Cardiomyopathy [Unknown]
  - Tricuspid valve incompetence [Unknown]
  - Mitral valve incompetence [Unknown]
  - Ventricular hypokinesia [Unknown]
  - Dilatation ventricular [Unknown]
  - Ejection fraction decreased [Unknown]
  - Left ventricular dysfunction [Unknown]
